FAERS Safety Report 24544627 (Version 1)
Quarter: 2024Q4

REPORT INFORMATION
  Report Type: Spontaneous
  Country: US (occurrence: US)
  Receive Date: 20241024
  Receipt Date: 20241024
  Transmission Date: 20250115
  Serious: Yes (Other)
  Sender: ABBVIE
  Company Number: US-ABBVIE-5966522

PATIENT
  Sex: Male

DRUGS (1)
  1. REFRESH OPTIVE MEGA-3 [Suspect]
     Active Substance: CARBOXYMETHYLCELLULOSE SODIUM\GLYCERIN\POLYSORBATE 80
     Indication: Product used for unknown indication
     Route: 047
     Dates: start: 202404

REACTIONS (7)
  - Intraocular lens implant [Unknown]
  - Vision blurred [Unknown]
  - Eye complication associated with device [Not Recovered/Not Resolved]
  - Retinitis pigmentosa [Unknown]
  - Cyanopsia [Unknown]
  - Eye disorder [Unknown]
  - Eye inflammation [Not Recovered/Not Resolved]

NARRATIVE: CASE EVENT DATE: 20240101
